FAERS Safety Report 24618996 (Version 1)
Quarter: 2024Q4

REPORT INFORMATION
  Report Type: Spontaneous
  Country: US (occurrence: None)
  Receive Date: 20241114
  Receipt Date: 20241114
  Transmission Date: 20250115
  Serious: Yes (Other)
  Sender: Public
  Company Number: None

PATIENT
  Age: 48 Year
  Sex: Female
  Weight: 135 kg

DRUGS (22)
  1. AJOVY [Suspect]
     Active Substance: FREMANEZUMAB-VFRM
     Indication: Migraine
     Dosage: OTHER QUANTITY : 1 INJECTION(S);?OTHER FREQUENCY : 1 SHOT A MONTH;?
     Route: 058
  2. ACETAMINOPHEN\OXYCODONE HYDROCHLORIDE [Concomitant]
     Active Substance: ACETAMINOPHEN\OXYCODONE HYDROCHLORIDE
  3. OXYBUTYNIN [Concomitant]
     Active Substance: OXYBUTYNIN
  4. NORETHINDRONE [Concomitant]
     Active Substance: NORETHINDRONE
  5. TOPIRAMATE [Concomitant]
     Active Substance: TOPIRAMATE
  6. LEVOTHYROXINE [Concomitant]
     Active Substance: LEVOTHYROXINE
  7. SPIRONOLACTONE [Concomitant]
     Active Substance: SPIRONOLACTONE
  8. TIZANIDINE [Concomitant]
     Active Substance: TIZANIDINE
  9. BUSPIRONE [Concomitant]
     Active Substance: BUSPIRONE HYDROCHLORIDE
  10. NEXIUM [Concomitant]
     Active Substance: ESOMEPRAZOLE MAGNESIUM
  11. DULOXETINE [Concomitant]
     Active Substance: DULOXETINE
  12. PROMETHAZINE [Concomitant]
     Active Substance: PROMETHAZINE HYDROCHLORIDE
  13. UNSPECIFIED INGREDIENT [Concomitant]
     Active Substance: UNSPECIFIED INGREDIENT
  14. VITAMIN B12 [Concomitant]
     Active Substance: CYANOCOBALAMIN
  15. MAGNESIUM [Concomitant]
     Active Substance: MAGNESIUM
  16. pre-natal vitamins [Concomitant]
  17. BIOTIN [Concomitant]
     Active Substance: BIOTIN
  18. COLACE [Concomitant]
     Active Substance: DOCUSATE SODIUM
  19. VITAMIN D3 [Concomitant]
     Active Substance: CHOLECALCIFEROL
  20. CALCIUM [Concomitant]
     Active Substance: CALCIUM
  21. cane [Concomitant]
  22. walker [Concomitant]

REACTIONS (12)
  - Nipple pain [None]
  - Heart rate irregular [None]
  - Pain [None]
  - Chest discomfort [None]
  - Hypoaesthesia [None]
  - Hypoaesthesia [None]
  - Arthralgia [None]
  - Cardiac disorder [None]
  - Migraine [None]
  - Inflammation [None]
  - Eye pain [None]
  - Nausea [None]

NARRATIVE: CASE EVENT DATE: 20241101
